FAERS Safety Report 5312544-9 (Version None)
Quarter: 2007Q2

REPORT INFORMATION
  Report Type: 
  Country: None (occurrence: None)
  Receive Date: 20070430
  Receipt Date: 20070123
  Transmission Date: 20071010
  Serious: No
  Sender: FDA-Public Use
  Company Number: 2007UW01394

PATIENT
  Age: 82 Year
  Sex: Male
  Weight: 77.1 kg

DRUGS (8)
  1. NEXIUM [Suspect]
     Indication: DYSPEPSIA
     Route: 048
  2. FLOMAX [Concomitant]
  3. LIPITOR [Concomitant]
  4. PAXIL CR [Concomitant]
  5. DIOVAN [Concomitant]
  6. ARTHROTEC [Concomitant]
     Dosage: 50/2
  7. ASPIRIN [Concomitant]
     Dosage: 81 MG 2 TAB
  8. ACCUVITE MVI [Concomitant]

REACTIONS (2)
  - BREATH ODOUR [None]
  - DRY MOUTH [None]
